FAERS Safety Report 5648981-2 (Version None)
Quarter: 2008Q1

REPORT INFORMATION
  Report Type: 
  Country: None (occurrence: None)
  Receive Date: 20080229
  Receipt Date: 20071130
  Transmission Date: 20080703
  Serious: Yes (Other)
  Sender: FDA-Public Use
  Company Number: 060001J07BRA

PATIENT
  Age: 39 Year
  Sex: Female

DRUGS (1)
  1. SEROPHENE [Suspect]
     Dates: start: 20070701

REACTIONS (4)
  - ABORTION SPONTANEOUS [None]
  - DRUG EXPOSURE DURING PREGNANCY [None]
  - HAEMORRHAGIC CYST [None]
  - OVARIAN ENLARGEMENT [None]
